FAERS Safety Report 12702173 (Version 4)
Quarter: 2017Q2

REPORT INFORMATION
  Report Type: Spontaneous
  Country: US (occurrence: US)
  Receive Date: 20160831
  Receipt Date: 20170609
  Transmission Date: 20170830
  Serious: No
  Sender: FDA-Public Use
  Company Number: US-PFIZER INC-2014040645

PATIENT
  Age: 67 Year
  Sex: Female
  Weight: 84 kg

DRUGS (13)
  1. CALCITROL [Concomitant]
     Active Substance: CALCITRIOL
     Dosage: UNK
  2. VIT B [Concomitant]
     Active Substance: VITAMIN B
     Dosage: UNK
  3. TRIAMTERENE. [Concomitant]
     Active Substance: TRIAMTERENE
     Dosage: UNK, AS NEEDED
  4. TRAMADOL. [Concomitant]
     Active Substance: TRAMADOL
     Dosage: UNK
  5. HYDROCODONE [Concomitant]
     Active Substance: HYDROCODONE
     Dosage: UNK
  6. FLUDROCORT [Concomitant]
     Dosage: UNK
  7. HCTZ [Concomitant]
     Active Substance: HYDROCHLOROTHIAZIDE
     Dosage: UNK
  8. MAGNESIUM [Concomitant]
     Active Substance: MAGNESIUM
     Dosage: UNK
  9. VITAMIN D [Concomitant]
     Active Substance: CHOLECALCIFEROL
     Dosage: UNK
  10. LYRICA [Suspect]
     Active Substance: PREGABALIN
     Indication: NEUROPATHY PERIPHERAL
     Dosage: 100 MG, 3X/DAY
     Route: 048
  11. LEVOTHYROXINE. [Concomitant]
     Active Substance: LEVOTHYROXINE
     Dosage: UNK
  12. LISINOPRIL. [Concomitant]
     Active Substance: LISINOPRIL
     Dosage: UNK, AS NEEDED
  13. FLUDROCORTISONE [Concomitant]
     Active Substance: FLUDROCORTISONE
     Dosage: UNK

REACTIONS (1)
  - Insomnia [Not Recovered/Not Resolved]
